FAERS Safety Report 7679827-9 (Version None)
Quarter: 2011Q3

REPORT INFORMATION
  Report Type: 
  Country: None (occurrence: None)
  Receive Date: 20110812
  Receipt Date: 20110803
  Transmission Date: 20111222
  Serious: Yes (Death, Life-Threatening, Hospitalization, Other)
  Sender: FDA-Public Use
  Company Number: JP-AMGEN-US399580

PATIENT
  Age: 70 Year
  Sex: Female
  Weight: 38 kg

DRUGS (10)
  1. ALFAROL [Concomitant]
     Dosage: UNK
     Route: 048
     Dates: start: 20061031, end: 20100204
  2. FOSAMAX [Concomitant]
     Dosage: UNK
     Route: 048
     Dates: start: 20081125, end: 20100204
  3. ASPARA-CA [Concomitant]
     Dosage: UNK
     Route: 048
     Dates: start: 20061031, end: 20100302
  4. PRELONE [Concomitant]
     Dosage: UNK
     Route: 048
     Dates: end: 20100302
  5. PROGRAF [Concomitant]
     Dosage: UNK
     Route: 048
     Dates: start: 20090507, end: 20090701
  6. PROGRAF [Concomitant]
     Dosage: UNK
     Route: 048
     Dates: start: 20061220, end: 20090324
  7. ENBREL [Suspect]
     Indication: RHEUMATOID ARTHRITIS
     Dosage: 50 MG, QWK
     Route: 058
     Dates: start: 20090212, end: 20100302
  8. RHEUMATREX [Suspect]
     Indication: RHEUMATOID ARTHRITIS
     Dosage: UNK
     Route: 048
     Dates: start: 20090930, end: 20091028
  9. LOXONIN [Concomitant]
     Dosage: UNK
     Route: 048
     Dates: start: 20060201, end: 20100302
  10. LANSOPRAZOLE [Suspect]
     Indication: ULCER
     Dosage: 15 MG, 1X/DAY
     Route: 048
     Dates: start: 20061220, end: 20100302

REACTIONS (13)
  - ACUTE DISSEMINATED ENCEPHALOMYELITIS [None]
  - URINARY TRACT INFECTION [None]
  - LUMBAR SPINAL STENOSIS [None]
  - DISSEMINATED INTRAVASCULAR COAGULATION [None]
  - BLOOD PHOSPHORUS DECREASED [None]
  - PLATELET COUNT DECREASED [None]
  - TEMPERATURE INTOLERANCE [None]
  - BLOOD POTASSIUM DECREASED [None]
  - TINNITUS [None]
  - VASCULITIS [None]
  - CEREBRAL INFARCTION [None]
  - DEAFNESS BILATERAL [None]
  - RENAL IMPAIRMENT [None]
